FAERS Safety Report 7932815 (Version 2)
Quarter: 2014Q1

REPORT INFORMATION
  Report Type: Spontaneous
  Country: US (occurrence: US)
  Receive Date: 20110506
  Receipt Date: 20140128
  Transmission Date: 20141002
  Serious: Yes (Hospitalization)
  Sender: FDA-Public Use
  Company Number: US-RANBAXY-2011US-44018

PATIENT
  Age: 72 Year
  Sex: Female

DRUGS (4)
  1. FLUOXETINE [Suspect]
     Indication: DEPRESSIVE SYMPTOM
     Dosage: 20 MG/DAY
     Route: 065
  2. DOXEPIN [Concomitant]
     Indication: DEPRESSION
     Dosage: 150 MG, QD (AT NIGHT)
     Route: 065
  3. L-THYROXINE [Concomitant]
     Indication: HYPOTHYROIDISM
     Dosage: 0.1 MG, DAILY
     Route: 065
  4. OMEPRAZOLE [Concomitant]
     Indication: OESOPHAGEAL ULCER
     Dosage: 20 MG, DAILY
     Route: 065

REACTIONS (4)
  - Myoclonus [Recovered/Resolved]
  - Chorea [Recovered/Resolved]
  - Dystonia [Recovered/Resolved]
  - Myoclonus [Recovered/Resolved]
